FAERS Safety Report 25401079 (Version 1)
Quarter: 2025Q2

REPORT INFORMATION
  Report Type: Report from Study
  Country: US (occurrence: US)
  Receive Date: 20250605
  Receipt Date: 20250605
  Transmission Date: 20250716
  Serious: Yes (Other)
  Sender: MALLINCKRODT
  Company Number: US-MALLINCKRODT-MNK202502399

PATIENT
  Sex: Female

DRUGS (2)
  1. CORTICOTROPIN [Suspect]
     Active Substance: CORTICOTROPIN
     Indication: Pulmonary sarcoidosis
  2. CORTICOTROPIN [Suspect]
     Active Substance: CORTICOTROPIN
     Indication: Sarcoidosis

REACTIONS (6)
  - Blood glucose increased [Unknown]
  - Throat irritation [Unknown]
  - Dyspnoea [Unknown]
  - Cough [Unknown]
  - Illness [Unknown]
  - Fatigue [Not Recovered/Not Resolved]
